FAERS Safety Report 6490389-4 (Version None)
Quarter: 2009Q4

REPORT INFORMATION
  Report Type: 
  Country: None (occurrence: None)
  Receive Date: 20091211
  Receipt Date: 20091201
  Transmission Date: 20100525
  Serious: No
  Sender: FDA-Public Use
  Company Number: B0611928A

PATIENT
  Age: 20 Year
  Sex: Female

DRUGS (4)
  1. RELENZA [Suspect]
     Indication: INFLUENZA
     Dosage: 10MG TWICE PER DAY
     Route: 055
     Dates: start: 20091130
  2. HUSCODE [Concomitant]
     Dosage: 6TAB PER DAY
     Dates: start: 20091130
  3. BAZAROIN [Concomitant]
     Route: 065
     Dates: start: 20091130
  4. CALONAL [Concomitant]
     Route: 065

REACTIONS (1)
  - DRUG EXPOSURE DURING PREGNANCY [None]
